FAERS Safety Report 10665096 (Version 1)
Quarter: 2014Q4

REPORT INFORMATION
  Report Type: Spontaneous
  Country: US (occurrence: None)
  Receive Date: 20141208
  Receipt Date: 20141208
  Transmission Date: 20150529
  Serious: No
  Sender: FDA-Public Use
  Company Number: 2014TUS007820

PATIENT
  Age: 57 Year
  Sex: Male

DRUGS (2)
  1. BRINTELLIX [Suspect]
     Active Substance: VORTIOXETINE HYDROBROMIDE
     Indication: MAJOR DEPRESSION
     Route: 048
  2. DIOVAN [Concomitant]
     Active Substance: VALSARTAN

REACTIONS (4)
  - Vomiting [None]
  - Urticaria [None]
  - Diarrhoea [None]
  - Nausea [None]
